FAERS Safety Report 21971431 (Version 1)
Quarter: 2023Q1

REPORT INFORMATION
  Report Type: Spontaneous
  Country: BR (occurrence: BR)
  Receive Date: 20230209
  Receipt Date: 20230209
  Transmission Date: 20230417
  Serious: Yes (Other)
  Sender: FDA-Public Use
  Company Number: BR-drreddys-LIT/BRA/23/0160732

PATIENT
  Sex: Male

DRUGS (2)
  1. ABIRATERONE [Suspect]
     Active Substance: ABIRATERONE
     Indication: Hormone-refractory prostate cancer
  2. PREDNISONE [Suspect]
     Active Substance: PREDNISONE
     Indication: Hyperaldosteronism

REACTIONS (3)
  - Hyperaldosteronism [Unknown]
  - Ascending flaccid paralysis [Unknown]
  - Hypokalaemia [Unknown]
